FAERS Safety Report 25770235 (Version 2)
Quarter: 2025Q3

REPORT INFORMATION
  Report Type: Spontaneous
  Country: GB (occurrence: GB)
  Receive Date: 20250907
  Receipt Date: 20250911
  Transmission Date: 20251021
  Serious: Yes (Other)
  Sender: BAUSCH AND LOMB
  Company Number: GB-BAUSCHBL-2025BNL015462

PATIENT
  Sex: Male

DRUGS (14)
  1. PREDNISOLONE [Suspect]
     Active Substance: PREDNISOLONE
     Indication: Pyoderma gangrenosum
     Route: 065
     Dates: start: 202206, end: 202403
  2. METHOTREXATE [Concomitant]
     Active Substance: METHOTREXATE
     Indication: Pyoderma gangrenosum
     Dates: start: 202207, end: 202209
  3. CYCLOSPORINE [Concomitant]
     Active Substance: CYCLOSPORINE
     Indication: Pyoderma gangrenosum
     Dates: start: 202301, end: 202311
  4. IMMUNOGLOBULIN [Concomitant]
     Indication: Pyoderma gangrenosum
     Route: 042
     Dates: start: 202304, end: 2024
  5. IMMUNOGLOBULIN [Concomitant]
     Route: 042
     Dates: start: 2025
  6. MYCOPHENOLATE MOFETIL [Concomitant]
     Active Substance: MYCOPHENOLATE MOFETIL
     Indication: Pyoderma gangrenosum
     Dates: start: 202211, end: 202303
  7. DAPSONE [Concomitant]
     Active Substance: DAPSONE
     Indication: Pyoderma gangrenosum
     Dates: start: 202209, end: 202301
  8. COLCHICINE [Concomitant]
     Active Substance: COLCHICINE
     Indication: Pyoderma gangrenosum
     Dates: start: 202212, end: 202306
  9. COLCHICINE [Concomitant]
     Active Substance: COLCHICINE
     Dates: start: 2025
  10. INFLIXIMAB [Concomitant]
     Active Substance: INFLIXIMAB
     Indication: Pyoderma gangrenosum
     Dates: start: 202209, end: 202209
  11. ANAKINRA [Concomitant]
     Active Substance: ANAKINRA
     Indication: Pyoderma gangrenosum
     Dates: start: 202208, end: 202210
  12. ADALIMUMAB [Concomitant]
     Active Substance: ADALIMUMAB
     Indication: Pyoderma gangrenosum
     Dates: start: 202302, end: 202407
  13. TOFACITINIB [Concomitant]
     Active Substance: TOFACITINIB
     Indication: Pyoderma gangrenosum
     Dates: start: 202303, end: 202407
  14. POTASSIUM PERMANGANATE [Concomitant]
     Active Substance: POTASSIUM PERMANGANATE
     Indication: Wound treatment

REACTIONS (1)
  - Hypertension [Unknown]

NARRATIVE: CASE EVENT DATE: 20230101
